FAERS Safety Report 10216387 (Version 3)
Quarter: 2014Q4

REPORT INFORMATION
  Report Type: Report from Study
  Country: NL (occurrence: NL)
  Receive Date: 20140604
  Receipt Date: 20141030
  Transmission Date: 20150528
  Serious: Yes (Other)
  Sender: FDA-Public Use
  Company Number: PHHY2014NL054382

PATIENT
  Age: 77 Year
  Sex: Female

DRUGS (1)
  1. SANDOSTATIN LAR DEPOT [Suspect]
     Active Substance: OCTREOTIDE ACETATE
     Indication: ACROMEGALY
     Dosage: 20 MG/2ML, QW4
     Route: 030

REACTIONS (3)
  - Visual acuity reduced [Not Recovered/Not Resolved]
  - Macular oedema [Unknown]
  - Cataract [Unknown]

NARRATIVE: CASE EVENT DATE: 20131112
